FAERS Safety Report 15192142 (Version 1)
Quarter: 2018Q3

REPORT INFORMATION
  Report Type: Spontaneous
  Country: US (occurrence: US)
  Receive Date: 20180626
  Receipt Date: 20180626
  Transmission Date: 20181010
  Serious: Yes (Other)
  Sender: FDA-Public Use
  Company Number: None

PATIENT
  Age: 10 Year
  Sex: Female
  Weight: 35 kg

DRUGS (4)
  1. PIPERACILLIN/TAZOBACTAM [Suspect]
     Active Substance: PIPERACILLIN SODIUM\TAZOBACTAM SODIUM
     Indication: FEBRILE NEUTROPENIA
     Route: 042
     Dates: start: 20180403, end: 20180413
  2. SIROLIMUS. [Concomitant]
     Active Substance: SIROLIMUS
     Dates: start: 20180327
  3. VANCOMYCIN [Suspect]
     Active Substance: VANCOMYCIN
     Indication: BACTERAEMIA
     Route: 042
     Dates: start: 20180323, end: 20180413
  4. ACYCLOVIR. [Concomitant]
     Active Substance: ACYCLOVIR
     Dates: start: 20180323

REACTIONS (5)
  - Acute kidney injury [None]
  - Immunosuppressant drug level increased [None]
  - Antibiotic level above therapeutic [None]
  - Stem cell transplant [None]
  - Febrile neutropenia [None]

NARRATIVE: CASE EVENT DATE: 20180413
